FAERS Safety Report 18114563 (Version 3)
Quarter: 2020Q3

REPORT INFORMATION
  Report Type: Spontaneous
  Country: US (occurrence: US)
  Receive Date: 20200805
  Receipt Date: 20200819
  Transmission Date: 20201103
  Serious: No
  Sender: FDA-Public Use
  Company Number: US-GLAXOSMITHKLINE-US2020AMR149469

PATIENT
  Sex: Female

DRUGS (3)
  1. ZEJULA [Suspect]
     Active Substance: NIRAPARIB
     Dosage: 100 MG, BID
     Route: 048
  2. ZEJULA [Suspect]
     Active Substance: NIRAPARIB
     Indication: OVARIAN CANCER
     Dosage: 200 MG, QD
     Route: 048
     Dates: start: 20200721
  3. ZEJULA [Suspect]
     Active Substance: NIRAPARIB
     Dosage: 200 MG, QD
     Route: 048
     Dates: start: 20200724

REACTIONS (13)
  - Migraine [Unknown]
  - Inappropriate schedule of product administration [Unknown]
  - Adverse drug reaction [Unknown]
  - Nausea [Recovering/Resolving]
  - Anxiety [Unknown]
  - Dysphagia [Unknown]
  - Constipation [Unknown]
  - Illness [Unknown]
  - Dysphonia [Unknown]
  - Off label use [Unknown]
  - Headache [Recovering/Resolving]
  - Blood pressure increased [Unknown]
  - Insomnia [Unknown]
